FAERS Safety Report 16643496 (Version 1)
Quarter: 2019Q3

REPORT INFORMATION
  Report Type: Spontaneous
  Country: US (occurrence: US)
  Receive Date: 20190729
  Receipt Date: 20190729
  Transmission Date: 20191004
  Serious: No
  Sender: FDA-Public Use
  Company Number: US-PRINSTON PHARMACEUTICAL INC.-2018PRN00355

PATIENT
  Age: 50 Year
  Sex: Female
  Weight: 40.82 kg

DRUGS (3)
  1. CLONAZEPAM. [Suspect]
     Active Substance: CLONAZEPAM
     Indication: ANXIETY
     Dosage: 2 TABLETS, 1X/DAY
     Route: 048
     Dates: start: 201011, end: 201011
  2. OTHER UNSPECIFIED PHARMACEUTICALS [Suspect]
     Active Substance: UNSPECIFIED INGREDIENT
     Dosage: UNK
  3. UNSPECIFIED ANTIDEPRESSANT [Concomitant]

REACTIONS (4)
  - Feeling abnormal [Recovered/Resolved]
  - Fear [Recovered/Resolved]
  - Syncope [Recovered/Resolved]
  - Hypoaesthesia [Recovered/Resolved]

NARRATIVE: CASE EVENT DATE: 201011
